FAERS Safety Report 6480739-7 (Version None)
Quarter: 2009Q4

REPORT INFORMATION
  Report Type: 
  Country: None (occurrence: None)
  Receive Date: 20091208
  Receipt Date: 20091202
  Transmission Date: 20100525
  Serious: Yes (Death, Other)
  Sender: FDA-Public Use
  Company Number: CL-BRISTOL-MYERS SQUIBB COMPANY-14880918

PATIENT
  Age: 43 Year
  Sex: Male

DRUGS (8)
  1. SPRYCEL [Suspect]
     Dates: start: 20091104
  2. CYCLOPHOSPHAMIDE [Suspect]
     Dates: start: 20091104
  3. ADRIAMYCIN PFS [Suspect]
     Dates: start: 20091104
  4. VINCRISTINE [Suspect]
  5. DEXAMETHASONE TAB [Suspect]
     Dates: start: 20091104
  6. TIENAM [Concomitant]
  7. METRONIDAZOLE [Concomitant]
  8. VANCOMYCIN [Concomitant]

REACTIONS (8)
  - AGRANULOCYTOSIS [None]
  - APPENDICITIS [None]
  - ASCITES [None]
  - CELLULITIS [None]
  - DEATH [None]
  - LOCALISED OEDEMA [None]
  - THROMBOCYTOPENIA [None]
  - THROMBOSIS [None]
